FAERS Safety Report 7637365-3 (Version None)
Quarter: 2011Q3

REPORT INFORMATION
  Report Type: 
  Country: None (occurrence: None)
  Receive Date: 20110726
  Receipt Date: 20110722
  Transmission Date: 20111222
  Serious: No
  Sender: FDA-Public Use
  Company Number: US-PFIZER INC-2011167325

PATIENT
  Sex: Female
  Weight: 68.027 kg

DRUGS (1)
  1. NITROSTAT [Suspect]
     Indication: ANGINA PECTORIS
     Dosage: 0.4 MG, AS NEEDED
     Route: 060

REACTIONS (2)
  - PRODUCT SOLUBILITY ABNORMAL [None]
  - LIVER FUNCTION TEST ABNORMAL [None]
